FAERS Safety Report 15620034 (Version 1)
Quarter: 2018Q4

REPORT INFORMATION
  Report Type: Report from Study
  Country: US (occurrence: US)
  Receive Date: 20181115
  Receipt Date: 20181115
  Transmission Date: 20190205
  Serious: Yes (Hospitalization)
  Sender: FDA-Public Use
  Company Number: US-ROCHE-2211777

PATIENT
  Age: 47 Year
  Sex: Male

DRUGS (2)
  1. OBINUTUZUMAB. [Suspect]
     Active Substance: OBINUTUZUMAB
     Indication: HAIRY CELL LEUKAEMIA
     Dosage: TARTING AT CYCLE 2 OF TREATMENT IN CYCLES OF 4 WEEKS (AS PER PROTOCOL)
     Route: 042
  2. VEMURAFENIB. [Suspect]
     Active Substance: VEMURAFENIB
     Indication: HAIRY CELL LEUKAEMIA
     Dosage: AS PER PROTOCOL
     Route: 048

REACTIONS (2)
  - Febrile neutropenia [Unknown]
  - Rash maculo-papular [Unknown]

NARRATIVE: CASE EVENT DATE: 20181101
